FAERS Safety Report 4512499-0 (Version None)
Quarter: 2004Q4

REPORT INFORMATION
  Report Type: 
  Country: None (occurrence: None)
  Receive Date: 20041124
  Receipt Date: 20041118
  Transmission Date: 20050328
  Serious: No
  Sender: FDA-Public Use
  Company Number: USA041183746

PATIENT
  Sex: Female
  Weight: 82 kg

DRUGS (4)
  1. ZYPREXA [Suspect]
     Indication: SCHIZOPHRENIA
     Dosage: 20 MG/1 DAY
     Dates: start: 20030101
  2. DEPAKOTE [Concomitant]
  3. PAXIL [Concomitant]
  4. AMBIEN [Concomitant]

REACTIONS (5)
  - HAEMATURIA [None]
  - OEDEMA PERIPHERAL [None]
  - PROTEINURIA [None]
  - TREATMENT NONCOMPLIANCE [None]
  - URINARY TRACT INFECTION [None]
